FAERS Safety Report 4833175-0 (Version None)
Quarter: 2005Q4

REPORT INFORMATION
  Report Type: 
  Country: None (occurrence: None)
  Receive Date: 20051121
  Receipt Date: 20051110
  Transmission Date: 20060501
  Serious: Yes (Other)
  Sender: FDA-Public Use
  Company Number: US-AMGEN-US157961

PATIENT
  Sex: Female
  Weight: 68.1 kg

DRUGS (5)
  1. PROCRIT [Suspect]
     Indication: ANAEMIA OF MALIGNANT DISEASE
     Dates: start: 20051101, end: 20051101
  2. MEGACE [Concomitant]
  3. DARVOCET-N 100 [Concomitant]
  4. PRINZIDE [Concomitant]
  5. ATENOLOL [Concomitant]

REACTIONS (6)
  - AGITATION [None]
  - ANAPHYLACTIC REACTION [None]
  - DYSPNOEA [None]
  - FLUSHING [None]
  - NERVOUSNESS [None]
  - PARAESTHESIA [None]
